FAERS Safety Report 6664701-7 (Version None)
Quarter: 2010Q1

REPORT INFORMATION
  Report Type: 
  Country: None (occurrence: None)
  Receive Date: 20100330
  Receipt Date: 20100215
  Transmission Date: 20100710
  Serious: Yes (Hospitalization)
  Sender: FDA-Public Use
  Company Number: 6058053

PATIENT
  Age: 1 Day
  Sex: Female

DRUGS (4)
  1. LEVOTHYROXINE SODIUM [Suspect]
     Indication: DRUG EXPOSURE DURING PREGNANCY
     Dosage: TRANSPLACENTAL
     Route: 064
     Dates: end: 20091006
  2. TRILEPTAL [Suspect]
     Dosage: TRANSPLACENTAL
     Route: 064
     Dates: end: 20091006
  3. DEPAKENE [Suspect]
     Indication: DRUG EXPOSURE DURING PREGNANCY
     Dosage: TRANSPLACENTAL
     Route: 064
     Dates: end: 20091006
  4. PAROXETINE HCL [Suspect]
     Indication: DRUG EXPOSURE DURING PREGNANCY
     Dosage: TRANSPLACENTAL
     Route: 064
     Dates: end: 20091006

REACTIONS (13)
  - AGITATION NEONATAL [None]
  - APNOEA [None]
  - COAGULATION DISORDER NEONATAL [None]
  - DYSMORPHISM [None]
  - HYPERAMMONAEMIA [None]
  - HYPERLACTACIDAEMIA [None]
  - HYPERPROTEINAEMIA [None]
  - HYPERTONIA NEONATAL [None]
  - HYPOTONIA NEONATAL [None]
  - MATERNAL DRUGS AFFECTING FOETUS [None]
  - METABOLIC DISORDER [None]
  - STRABISMUS [None]
  - TREMOR NEONATAL [None]
